FAERS Safety Report 23055799 (Version 1)
Quarter: 2023Q4

REPORT INFORMATION
  Report Type: Spontaneous
  Country: JP (occurrence: JP)
  Receive Date: 20231011
  Receipt Date: 20231011
  Transmission Date: 20240110
  Serious: Yes (Hospitalization, Other)
  Sender: FDA-Public Use
  Company Number: JP-SUN PHARMACEUTICAL INDUSTRIES LTD-2023R1-412172

PATIENT
  Age: 77 Year
  Sex: Male

DRUGS (1)
  1. CARBOPLATIN [Suspect]
     Active Substance: CARBOPLATIN
     Indication: Keratinising squamous cell carcinoma of nasopharynx
     Dosage: 100 MILLIGRAM/SQ. METER, WEEKLY
     Route: 065

REACTIONS (1)
  - Disease recurrence [Unknown]
